FAERS Safety Report 7913298-X (Version None)
Quarter: 2011Q4

REPORT INFORMATION
  Report Type: 
  Country: None (occurrence: None)
  Receive Date: 20111114
  Receipt Date: 20111103
  Transmission Date: 20120403
  Serious: Yes (Other)
  Sender: FDA-Public Use
  Company Number: US-ASTRAZENECA-2011SE29882

PATIENT
  Age: 48 Year
  Sex: Male

DRUGS (2)
  1. PRILOSEC [Suspect]
     Route: 048
  2. NEXIUM [Suspect]
     Route: 048

REACTIONS (8)
  - GASTRIC CANCER [None]
  - DIABETES MELLITUS [None]
  - NEOPLASM MALIGNANT [None]
  - GASTRIC ULCER HAEMORRHAGE [None]
  - MYOCARDIAL INFARCTION [None]
  - HEPATITIS C [None]
  - DRUG DOSE OMISSION [None]
  - RECTAL HAEMORRHAGE [None]
